FAERS Safety Report 26065480 (Version 1)
Quarter: 2025Q4

REPORT INFORMATION
  Report Type: Spontaneous
  Country: US (occurrence: US)
  Receive Date: 20251119
  Receipt Date: 20251119
  Transmission Date: 20260117
  Serious: Yes (Hospitalization)
  Sender: NOVARTIS
  Company Number: US-002147023-NVSC2025US175037

PATIENT
  Age: 31 Year
  Sex: Male

DRUGS (2)
  1. TAFINLAR [Suspect]
     Active Substance: DABRAFENIB MESYLATE
     Indication: Cytokine release syndrome
     Dosage: 150 MG, BID
     Route: 048
     Dates: start: 202505
  2. MEKINIST [Suspect]
     Active Substance: TRAMETINIB DIMETHYL SULFOXIDE
     Indication: Cytokine release syndrome
     Dosage: 2 MG, QD
     Route: 048
     Dates: start: 202505

REACTIONS (5)
  - Diplopia [Unknown]
  - Brain oedema [Unknown]
  - Nausea [Unknown]
  - Ocular discomfort [Unknown]
  - Off label use [Unknown]

NARRATIVE: CASE EVENT DATE: 20251102
